FAERS Safety Report 7877101-9 (Version None)
Quarter: 2011Q4

REPORT INFORMATION
  Report Type: 
  Country: None (occurrence: None)
  Receive Date: 20111031
  Receipt Date: 20111024
  Transmission Date: 20120403
  Serious: Yes (Hospitalization, Other)
  Sender: FDA-Public Use
  Company Number: DE-ABBOTT-11P-062-0860635-00

PATIENT
  Sex: Female
  Weight: 50 kg

DRUGS (5)
  1. SULFASALAZINE [Concomitant]
  2. PREDNISOLONE [Concomitant]
     Indication: RHEUMATOID ARTHRITIS
  3. METHOTREXATE [Concomitant]
     Indication: RHEUMATOID ARTHRITIS
     Dates: start: 20060101
  4. SULFASALAZINE [Concomitant]
     Indication: PRODUCT USED FOR UNKNOWN INDICATION
     Dates: start: 20061001, end: 20110601
  5. HUMIRA [Suspect]
     Indication: RHEUMATOID ARTHRITIS
     Dates: start: 20100927, end: 20110601

REACTIONS (6)
  - BLEEDING TIME PROLONGED [None]
  - PARAESTHESIA [None]
  - GRAND MAL CONVULSION [None]
  - MOTOR DYSFUNCTION [None]
  - CENTRAL NERVOUS SYSTEM LESION [None]
  - DEMYELINATION [None]
